FAERS Safety Report 8369032-5 (Version None)
Quarter: 2012Q2

REPORT INFORMATION
  Report Type: 
  Country: None (occurrence: None)
  Receive Date: 20120518
  Receipt Date: 20120508
  Transmission Date: 20120825
  Serious: Yes (Other)
  Sender: FDA-Public Use
  Company Number: US-ROCHE-GNE320345

PATIENT
  Sex: Female
  Weight: 74.456 kg

DRUGS (7)
  1. THEOPHYLLINE [Concomitant]
     Indication: ASTHMA
  2. OMALIZUMAB [Suspect]
     Indication: ASTHMA
     Dosage: ON 03/FEB/2011, LAST DOSE, 300 MG OF OMALIZUMAB ADMINISTERED
     Dates: start: 20100606
  3. VITAMIN AND MINERAL PRENATAL SUPPLEMENT W/ FOLIC ACID CAP [Concomitant]
  4. GLYBURIDE [Concomitant]
     Indication: GESTATIONAL DIABETES
  5. DULCOLAX TABLET [Concomitant]
     Indication: HAEMORRHOIDS
  6. VITAMIN AND MINERAL PRENATAL SUPPLEMENT W/ FOLIC ACID CAP [Concomitant]
     Indication: PREGNANCY
  7. VENTOLIN [Concomitant]
     Indication: ASTHMA

REACTIONS (2)
  - GESTATIONAL DIABETES [None]
  - MATERNAL EXPOSURE DURING PREGNANCY [None]
